FAERS Safety Report 4532922-5 (Version None)
Quarter: 2004Q4

REPORT INFORMATION
  Report Type: 
  Country: None (occurrence: None)
  Receive Date: 20041206
  Receipt Date: 20041027
  Transmission Date: 20050328
  Serious: No
  Sender: FDA-Public Use
  Company Number: USA041082365

PATIENT
  Age: 54 Year
  Sex: Male

DRUGS (3)
  1. CYMBALTA [Suspect]
     Indication: NERVOUSNESS
     Dosage: 60 MG DAY
     Dates: start: 20041001, end: 20041026
  2. DARVOCET-N 100 [Concomitant]
  3. NAPROSYN (NAPROSYN MEPHA) [Concomitant]

REACTIONS (2)
  - DRUG INEFFECTIVE [None]
  - HYPERHIDROSIS [None]
